FAERS Safety Report 11702699 (Version 8)
Quarter: 2020Q4

REPORT INFORMATION
  Report Type: Spontaneous
  Country: US (occurrence: US)
  Receive Date: 20151105
  Receipt Date: 20201223
  Transmission Date: 20210113
  Serious: Yes (Other)
  Sender: FDA-Public Use
  Company Number: US-PFIZER INC-2015371915

PATIENT
  Age: 60 Year
  Sex: Female
  Weight: 54 kg

DRUGS (6)
  1. AROMASIN [Suspect]
     Active Substance: EXEMESTANE
     Dosage: 25 MG, DAILY
     Dates: start: 201105
  2. DIGOXIN. [Concomitant]
     Active Substance: DIGOXIN
     Indication: ATRIAL FIBRILLATION
     Dosage: 0.25 MG, DAILY
     Dates: start: 201104
  3. LISINOPRIL. [Concomitant]
     Active Substance: LISINOPRIL
     Indication: BLOOD PRESSURE ABNORMAL
     Dosage: 10 MG, DAILY
     Dates: start: 201104
  4. AROMASIN [Suspect]
     Active Substance: EXEMESTANE
     Indication: BREAST CANCER
     Dosage: 25 MG, DAILY
     Route: 048
     Dates: start: 2011, end: 2011
  5. WARFARIN [Concomitant]
     Active Substance: WARFARIN
     Indication: ANTICOAGULANT THERAPY
     Dosage: 5 MG, DAILY
     Dates: start: 201004
  6. SOTALOL. [Concomitant]
     Active Substance: SOTALOL
     Indication: ATRIAL FIBRILLATION
     Dosage: 120 MG, 2X/DAY
     Dates: start: 201104

REACTIONS (12)
  - Osteoarthritis [Unknown]
  - Limb discomfort [Unknown]
  - Arthralgia [Unknown]
  - Immune system disorder [Unknown]
  - Influenza [Not Recovered/Not Resolved]
  - Axillary pain [Unknown]
  - Synovial rupture [Unknown]
  - Neoplasm progression [Unknown]
  - Bone pain [Unknown]
  - Hypoacusis [Unknown]
  - Osteogenesis imperfecta [Unknown]
  - Limb injury [Unknown]

NARRATIVE: CASE EVENT DATE: 2011
